FAERS Safety Report 6366849-3 (Version None)
Quarter: 2009Q3

REPORT INFORMATION
  Report Type: 
  Country: None (occurrence: None)
  Receive Date: 20090921
  Receipt Date: 20090916
  Transmission Date: 20100115
  Serious: Yes (Death, Other)
  Sender: FDA-Public Use
  Company Number: BR-ABBOTT-09P-020-0589125-00

PATIENT
  Sex: Female
  Weight: 55 kg

DRUGS (9)
  1. HUMIRA [Suspect]
     Indication: RHEUMATOID ARTHRITIS
     Route: 058
  2. PROPRANOLOL [Concomitant]
     Indication: HYPERTENSION
     Route: 048
  3. CAPTOPRIL [Concomitant]
     Indication: HYPERTENSION
     Route: 048
  4. SODIUM DICLOFENAC [Concomitant]
     Indication: DRUG USE FOR UNKNOWN INDICATION
     Route: 048
  5. RANITIDINE [Concomitant]
     Indication: GASTRIC DISORDER
     Route: 048
  6. DIAZEPAM [Concomitant]
     Indication: NERVOUSNESS
     Dosage: 1/2 TABLET DAILY
     Route: 048
  7. UNKNOWN MAGISTRAL FORMULA [Concomitant]
     Indication: RHEUMATOID ARTHRITIS
     Route: 048
  8. LASIX [Concomitant]
     Indication: HYPERTENSION
  9. FUROSEMIDE [Concomitant]
     Indication: HYPERTENSION

REACTIONS (7)
  - HAEMORRHAGE [None]
  - HYPERTENSION [None]
  - LUNG INFILTRATION [None]
  - MATERNAL DEATH AFFECTING FOETUS [None]
  - PYREXIA [None]
  - RENAL COLIC [None]
  - RENAL PAIN [None]
